FAERS Safety Report 8573583-8 (Version None)
Quarter: 2012Q3

REPORT INFORMATION
  Report Type: 
  Country: None (occurrence: None)
  Receive Date: 20120806
  Receipt Date: 20120726
  Transmission Date: 20120928
  Serious: Yes (Hospitalization, Other)
  Sender: FDA-Public Use
  Company Number: US-ASTRAZENECA-2010SE16572

PATIENT
  Age: 83 Year
  Sex: Female
  Weight: 73.9 kg

DRUGS (10)
  1. FEMARA [Concomitant]
     Indication: NEOPLASM MALIGNANT
  2. CARDIO DRUGS [Concomitant]
  3. SYNTHROID [Concomitant]
     Indication: HYPOTHYROIDISM
  4. VITAMIN D [Concomitant]
     Dosage: 2000 UNITS DAILY
  5. SEROQUEL [Suspect]
     Indication: SLEEP DISORDER
     Route: 048
     Dates: start: 20050101
  6. SEROQUEL [Suspect]
     Dosage: GENERIC
     Route: 048
     Dates: start: 20120401
  7. FOLIC ACID [Concomitant]
  8. ROBAXIN [Concomitant]
     Indication: MUSCLE RELAXANT THERAPY
  9. ZANTAC [Concomitant]
  10. LASIX [Concomitant]
     Indication: OEDEMA PERIPHERAL

REACTIONS (15)
  - NEOPLASM MALIGNANT [None]
  - DRUG DOSE OMISSION [None]
  - PELVIC FRACTURE [None]
  - CATARACT [None]
  - FALL [None]
  - BACK PAIN [None]
  - SALIVA ALTERED [None]
  - INSOMNIA [None]
  - NAUSEA [None]
  - GINGIVAL PAIN [None]
  - MUSCLE SPASMS [None]
  - ABDOMINAL DISCOMFORT [None]
  - HERNIA [None]
  - GLOSSODYNIA [None]
  - MALAISE [None]
